FAERS Safety Report 24911568 (Version 3)
Quarter: 2025Q1

REPORT INFORMATION
  Report Type: Spontaneous
  Country: US (occurrence: US)
  Receive Date: 20250131
  Receipt Date: 20250305
  Transmission Date: 20250408
  Serious: No
  Sender: PFIZER
  Company Number: US-PFIZER INC-202500018465

PATIENT
  Age: 14 Year
  Sex: Male

DRUGS (1)
  1. GENOTROPIN [Suspect]
     Active Substance: SOMATROPIN
     Dates: end: 202405

REACTIONS (2)
  - Headache [Unknown]
  - Nausea [Unknown]
